FAERS Safety Report 6419277-6 (Version None)
Quarter: 2009Q4

REPORT INFORMATION
  Report Type: 
  Country: None (occurrence: None)
  Receive Date: 20091029
  Receipt Date: 20090515
  Transmission Date: 20100525
  Serious: Yes (Death, Hospitalization)
  Sender: FDA-Public Use
  Company Number: PHEH2009US12608

PATIENT
  Sex: Male
  Weight: 157 kg

DRUGS (2)
  1. EXJADE [Suspect]
     Indication: MULTIPLE MYELOMA
     Dosage: 1250MG / DAILY
     Dates: start: 20070904, end: 20071105
  2. EXJADE [Suspect]
     Indication: HAEMOSIDEROSIS

REACTIONS (3)
  - DEATH [None]
  - GASTROINTESTINAL HAEMORRHAGE [None]
  - RESPIRATORY FAILURE [None]
